FAERS Safety Report 8086383-2 (Version None)
Quarter: 2012Q1

REPORT INFORMATION
  Report Type: 
  Country: None (occurrence: None)
  Receive Date: 20120128
  Receipt Date: 20110508
  Transmission Date: 20120608
  Serious: Yes (Other)
  Sender: FDA-Public Use
  Company Number: US-ABBOTT-11P-163-0724671-00

PATIENT
  Sex: Female
  Weight: 62.198 kg

DRUGS (9)
  1. LISINOPRIL [Concomitant]
     Indication: HYPERTENSION
  2. MEVACOR [Concomitant]
     Indication: BLOOD TRIGLYCERIDES INCREASED
  3. FISH OIL [Concomitant]
     Indication: SUPPLEMENTATION THERAPY
  4. HUMIRA [Suspect]
     Dates: end: 20110101
  5. METHOTREXATE [Concomitant]
     Indication: RHEUMATOID ARTHRITIS
  6. BONIVA [Concomitant]
     Indication: OSTEOPOROSIS
  7. FOLIC ACID [Concomitant]
     Indication: VITAMIN SUPPLEMENTATION
  8. HUMIRA [Suspect]
     Indication: RHEUMATOID ARTHRITIS
     Dates: start: 20050101, end: 20100701
  9. HUMIRA [Suspect]
     Dates: start: 20110301

REACTIONS (12)
  - ARTHRALGIA [None]
  - PAIN IN EXTREMITY [None]
  - CHEST DISCOMFORT [None]
  - BONE EROSION [None]
  - DEVICE MALFUNCTION [None]
  - HYPERTENSION [None]
  - RHEUMATOID ARTHRITIS [None]
  - JOINT ARTHROPLASTY [None]
  - INJECTION SITE URTICARIA [None]
  - FATIGUE [None]
  - INCORRECT DOSE ADMINISTERED [None]
  - INJECTION SITE PAIN [None]
